FAERS Safety Report 10173423 (Version 1)
Quarter: 2014Q2

REPORT INFORMATION
  Report Type: Spontaneous
  Country: GB (occurrence: GB)
  Receive Date: 20140515
  Receipt Date: 20140515
  Transmission Date: 20141212
  Serious: Yes (Hospitalization, Other)
  Sender: FDA-Public Use
  Company Number: GB-TEVA-481055ISR

PATIENT
  Sex: Male

DRUGS (2)
  1. MODAFINIL [Suspect]
     Dosage: 200 MILLIGRAM DAILY;
  2. ATORVASTATIN [Concomitant]
     Dosage: REPORTER WAS NOT 100% SURE THAT THE PATIENT WAS ADMINISTERING ATORVASTATIN
     Route: 065

REACTIONS (1)
  - Arrhythmia [Unknown]
